FAERS Safety Report 17325047 (Version 1)
Quarter: 2020Q1

REPORT INFORMATION
  Report Type: Report from Study
  Country: IE (occurrence: IE)
  Receive Date: 20200127
  Receipt Date: 20200127
  Transmission Date: 20200409
  Serious: Yes (Hospitalization)
  Sender: FDA-Public Use
  Company Number: IE-ASTRAZENECA-2020SE12882

PATIENT
  Age: 381 Day
  Sex: Male

DRUGS (4)
  1. SYNAGIS [Suspect]
     Active Substance: PALIVIZUMAB
     Indication: HEPATIC FAILURE
     Dosage: SEASON 1, 15 MG/KG MONTHLY
     Route: 030
     Dates: start: 20191016, end: 20191016
  2. SYNAGIS [Suspect]
     Active Substance: PALIVIZUMAB
     Indication: HEPATIC FAILURE
     Dosage: SEASON 1, 15 MG/KG MONTHLY
     Route: 030
     Dates: start: 20191219
  3. OMEPRAZOLE. [Concomitant]
     Active Substance: OMEPRAZOLE
     Indication: PRODUCT USED FOR UNKNOWN INDICATION
     Route: 050
  4. SYNAGIS [Suspect]
     Active Substance: PALIVIZUMAB
     Indication: HEPATIC FAILURE
     Dosage: SEASON 1, 15 MG/KG MONTHLY
     Route: 030
     Dates: start: 20191120, end: 20191120

REACTIONS (2)
  - Bronchiolitis [Recovered/Resolved]
  - Off label use [Unknown]

NARRATIVE: CASE EVENT DATE: 20191223
